FAERS Safety Report 7404451-2 (Version None)
Quarter: 2011Q2

REPORT INFORMATION
  Report Type: 
  Country: None (occurrence: None)
  Receive Date: 20110408
  Receipt Date: 20110406
  Transmission Date: 20111010
  Serious: Yes (Hospitalization, Disabling)
  Sender: FDA-Public Use
  Company Number: GB-MERCK-1103GBR00108

PATIENT
  Age: 64 Year
  Sex: Male

DRUGS (1)
  1. FOSAMAX [Suspect]
     Indication: PROPHYLAXIS
     Route: 048
     Dates: start: 20110304

REACTIONS (4)
  - GASTRIC ULCER [None]
  - OESOPHAGITIS [None]
  - OESOPHAGEAL STENOSIS [None]
  - PAIN [None]
